FAERS Safety Report 23347938 (Version 1)
Quarter: 2023Q4

REPORT INFORMATION
  Report Type: Spontaneous
  Country: BR (occurrence: BR)
  Receive Date: 20231228
  Receipt Date: 20231228
  Transmission Date: 20240109
  Serious: Yes (Other)
  Sender: FDA-Public Use
  Company Number: BR-SA-SAC20231211000016

PATIENT
  Sex: Male

DRUGS (1)
  1. SABRIL [Suspect]
     Active Substance: VIGABATRIN
     Indication: Microcephaly
     Dosage: UNK
     Route: 065

REACTIONS (4)
  - Seizure [Unknown]
  - Feeding disorder [Unknown]
  - Nervousness [Unknown]
  - Product use in unapproved indication [Unknown]
